FAERS Safety Report 9412068 (Version 1)
Quarter: 2013Q3

REPORT INFORMATION
  Report Type: Spontaneous
  Country: US (occurrence: US)
  Receive Date: 20130722
  Receipt Date: 20130722
  Transmission Date: 20140515
  Serious: Yes (Hospitalization)
  Sender: FDA-Public Use
  Company Number: US-BAYER-2013-088154

PATIENT
  Age: 30 Year
  Sex: Female

DRUGS (3)
  1. YAZ [Suspect]
  2. YASMIN [Suspect]
  3. NAPROXEN SOD [Concomitant]
     Dosage: 550 MG, UNK
     Dates: start: 20050318

REACTIONS (1)
  - Deep vein thrombosis [Recovered/Resolved]
